FAERS Safety Report 8597858-1 (Version None)
Quarter: 2012Q3

REPORT INFORMATION
  Report Type: 
  Country: None (occurrence: None)
  Receive Date: 20120816
  Receipt Date: 20120815
  Transmission Date: 20120928
  Serious: Yes (Hospitalization)
  Sender: FDA-Public Use
  Company Number: PHFR2012GB004512

PATIENT
  Age: 26 Year
  Sex: Female
  Weight: 98 kg

DRUGS (4)
  1. HYOSCINE HYDROBROMIDE [Concomitant]
  2. PROPRANOLOL [Concomitant]
  3. CLOZAPINE [Suspect]
     Indication: SCHIZOPHRENIA, PARANOID TYPE
     Dosage: 150 MG
     Route: 048
  4. SERTRALINE HYDROCHLORIDE [Concomitant]

REACTIONS (7)
  - DIARRHOEA [None]
  - TYPE 1 DIABETES MELLITUS [None]
  - DIABETIC COMA [None]
  - DIABETIC KETOACIDOSIS [None]
  - TACHYCARDIA [None]
  - BLOOD GLUCOSE INCREASED [None]
  - VOMITING [None]
